FAERS Safety Report 16243587 (Version 2)
Quarter: 2019Q2

REPORT INFORMATION
  Report Type: Spontaneous
  Country: US (occurrence: US)
  Receive Date: 20190426
  Receipt Date: 20190604
  Transmission Date: 20190711
  Serious: No
  Sender: FDA-Public Use
  Company Number: US-PFIZER INC-2019172614

PATIENT
  Age: 71 Year
  Sex: Female

DRUGS (1)
  1. DISOPYRAMIDE PHOSPHATE. [Suspect]
     Active Substance: DISOPYRAMIDE PHOSPHATE
     Indication: VENTRICULAR EXTRASYSTOLES
     Dosage: UNK

REACTIONS (4)
  - Insomnia [Unknown]
  - Product use in unapproved indication [Unknown]
  - Therapeutic product effect incomplete [Unknown]
  - Off label use [Unknown]
